FAERS Safety Report 7392529-1 (Version None)
Quarter: 2011Q2

REPORT INFORMATION
  Report Type: 
  Country: None (occurrence: None)
  Receive Date: 20110404
  Receipt Date: 20090930
  Transmission Date: 20111010
  Serious: Yes (Other)
  Sender: FDA-Public Use
  Company Number: US-BAYER-200934717NA

PATIENT
  Sex: Female
  Weight: 81.315 kg

DRUGS (2)
  1. TRASYLOL [Suspect]
     Indication: AORTIC VALVE REPLACEMENT
  2. TRASYLOL [Suspect]
     Indication: CORONARY ARTERY BYPASS
     Route: 042
     Dates: start: 20041129

REACTIONS (8)
  - INJURY [None]
  - PAIN [None]
  - DEPRESSION [None]
  - FEAR [None]
  - ANHEDONIA [None]
  - ANXIETY [None]
  - UNEVALUABLE EVENT [None]
  - CEREBROVASCULAR ACCIDENT [None]
